FAERS Safety Report 25199573 (Version 1)
Quarter: 2025Q2

REPORT INFORMATION
  Report Type: Other
  Country: IR (occurrence: IR)
  Receive Date: 20250415
  Receipt Date: 20250415
  Transmission Date: 20250716
  Serious: Yes (Hospitalization, Other)
  Sender: Kanchan Healthcare
  Company Number: IR-Kanchan Healthcare INC-2174939

PATIENT
  Age: 43 Year
  Sex: Male

DRUGS (1)
  1. DEXAMETHASONE [Suspect]
     Active Substance: DEXAMETHASONE
     Indication: Product used for unknown indication

REACTIONS (6)
  - Immunosuppression [Unknown]
  - Intentional product misuse [Unknown]
  - Pleural effusion [Recovered/Resolved]
  - Respiratory distress [Unknown]
  - Pulmonary tuberculosis [Unknown]
  - Disseminated tuberculosis [Unknown]
